FAERS Safety Report 7641169-5 (Version None)
Quarter: 2011Q3

REPORT INFORMATION
  Report Type: 
  Country: None (occurrence: None)
  Receive Date: 20110728
  Receipt Date: 20110719
  Transmission Date: 20111222
  Serious: Yes (Death, Life-Threatening, Hospitalization, Disabling, Other)
  Sender: FDA-Public Use
  Company Number: ES-JNJFOC-20100702715

PATIENT
  Sex: Female
  Weight: 57 kg

DRUGS (10)
  1. DEXAMETHASONE [Suspect]
     Dates: start: 20100628
  2. DEXAMETHASONE [Suspect]
     Dates: start: 20091112, end: 20100608
  3. DEXAMETHASONE [Suspect]
     Indication: LEUKAEMIA PLASMACYTIC
     Dates: start: 20100629
  4. VELCADE [Suspect]
     Indication: LEUKAEMIA PLASMACYTIC
     Route: 042
     Dates: start: 20100629
  5. EPOETINA ALFA [Suspect]
     Indication: ANAEMIA
     Route: 058
     Dates: end: 20100531
  6. DEXAMETHASONE [Suspect]
     Indication: MULTIPLE MYELOMA
     Dates: start: 20100629
  7. DEXAMETHASONE [Suspect]
     Dates: start: 20100628
  8. LENALIDOMIDE [Concomitant]
     Indication: MULTIPLE MYELOMA
     Dates: start: 20100521, end: 20100608
  9. DEXAMETHASONE [Suspect]
     Dates: start: 20091112, end: 20100608
  10. LOPERAMIDE HYDROCHLORIDE [Concomitant]
     Indication: DIARRHOEA
     Route: 048
     Dates: start: 20100625, end: 20100701

REACTIONS (7)
  - HYPERTENSIVE CRISIS [None]
  - LEUKAEMIA PLASMACYTIC [None]
  - THROMBOCYTOPENIA [None]
  - ACUTE PULMONARY OEDEMA [None]
  - NEUTROPENIA [None]
  - ANAEMIA [None]
  - DIARRHOEA [None]
